FAERS Safety Report 11077539 (Version 2)
Quarter: 2015Q2

REPORT INFORMATION
  Report Type: Spontaneous
  Country: US (occurrence: US)
  Receive Date: 20150430
  Receipt Date: 20150526
  Transmission Date: 20150821
  Serious: No
  Sender: FDA-Public Use
  Company Number: US-JNJFOC-20150120190

PATIENT
  Age: 69 Year
  Sex: Male

DRUGS (1)
  1. PANCREAZE [Suspect]
     Active Substance: PANCRELIPASE
     Indication: PRODUCT USED FOR UNKNOWN INDICATION
     Route: 048
     Dates: start: 201309

REACTIONS (3)
  - Poor quality drug administered [Unknown]
  - Incorrect product storage [Unknown]
  - Drug dispensing error [Unknown]
